FAERS Safety Report 8161773-8 (Version None)
Quarter: 2012Q1

REPORT INFORMATION
  Report Type: 
  Country: None (occurrence: None)
  Receive Date: 20120224
  Receipt Date: 20110328
  Transmission Date: 20120608
  Serious: No
  Sender: FDA-Public Use
  Company Number: US-BRISTOL-MYERS SQUIBB COMPANY-15641806

PATIENT
  Age: 5 Decade
  Sex: Female

DRUGS (2)
  1. METFORMIN HCL [Suspect]
     Indication: DIABETES MELLITUS MANAGEMENT
     Dosage: START DATE 2 TO 3 YERS AGO
     Route: 048
  2. LEVOXYL [Concomitant]

REACTIONS (1)
  - DIARRHOEA [None]
